FAERS Safety Report 14401073 (Version 1)
Quarter: 2018Q1

REPORT INFORMATION
  Report Type: Spontaneous
  Country: TR (occurrence: TR)
  Receive Date: 20180117
  Receipt Date: 20180117
  Transmission Date: 20180509
  Serious: Yes (Hospitalization)
  Sender: FDA-Public Use
  Company Number: PHHY2018TR002469

PATIENT
  Age: 21 Year
  Sex: Male

DRUGS (2)
  1. QUETIAPINE. [Suspect]
     Active Substance: QUETIAPINE
     Indication: PRODUCT USED FOR UNKNOWN INDICATION
     Dosage: 100 MG, QD
     Route: 065
  2. ARIPIPRAZOLE. [Suspect]
     Active Substance: ARIPIPRAZOLE
     Indication: PRODUCT USED FOR UNKNOWN INDICATION
     Dosage: 20 MG, QD
     Route: 065

REACTIONS (13)
  - Insomnia [Recovering/Resolving]
  - Delusion [Recovering/Resolving]
  - Aggression [Recovering/Resolving]
  - Hallucination, auditory [Recovering/Resolving]
  - Anxiety [Recovering/Resolving]
  - Social avoidant behaviour [Recovering/Resolving]
  - Therapeutic response decreased [Unknown]
  - Decreased interest [Recovering/Resolving]
  - Speech disorder [Recovering/Resolving]
  - Schizophrenia [Recovering/Resolving]
  - Homicidal ideation [Recovering/Resolving]
  - Psychotic disorder [Recovering/Resolving]
  - Irritability [Recovering/Resolving]
